FAERS Safety Report 5409674-X (Version None)
Quarter: 2007Q3

REPORT INFORMATION
  Report Type: 
  Country: None (occurrence: None)
  Receive Date: 20070809
  Receipt Date: 20070806
  Transmission Date: 20080115
  Serious: Yes (Hospitalization)
  Sender: FDA-Public Use
  Company Number: FR-ELI_LILLY_AND_COMPANY-FR200708000921

PATIENT
  Age: 73 Year
  Sex: Male

DRUGS (8)
  1. GEMZAR [Suspect]
     Indication: BLADDER CANCER
     Dosage: UNK, UNKNOWN
     Route: 065
  2. KAYEXALATE [Concomitant]
     Dosage: UNK, UNKNOWN
     Route: 065
  3. PARACETAMOL [Concomitant]
     Dosage: 1 G, DAILY (1/D)
     Route: 065
  4. ANTIINFLAMMATORY/ANTIRHEUMATIC NON-STEROIDS [Concomitant]
     Indication: ARTHRALGIA
     Dosage: UNK, UNKNOWN
     Route: 065
  5. ATARAX /00058401/ [Concomitant]
     Dosage: 25 MG, UNKNOWN
     Route: 065
  6. FORLAX [Concomitant]
     Dosage: UNK, UNKNOWN
     Route: 065
  7. CISPLATIN [Concomitant]
     Indication: BLADDER CANCER
     Dosage: UNK, UNKNOWN
     Route: 065
  8. ANGIOTENSIN II ANTAGONISTS [Concomitant]
     Dosage: UNK, UNKNOWN
     Route: 065

REACTIONS (3)
  - DEHYDRATION [None]
  - METABOLIC DISORDER [None]
  - RENAL FAILURE ACUTE [None]
